FAERS Safety Report 25531506 (Version 3)
Quarter: 2025Q3

REPORT INFORMATION
  Report Type: Report from Study
  Country: US (occurrence: US)
  Receive Date: 20250709
  Receipt Date: 20250827
  Transmission Date: 20251021
  Serious: Yes (Other)
  Sender: ABBVIE
  Company Number: US-ABBVIE-6360684

PATIENT
  Sex: Male

DRUGS (1)
  1. BOTOX [Suspect]
     Active Substance: ONABOTULINUMTOXINA
     Indication: Blepharospasm
     Route: 030
     Dates: start: 2018, end: 2018

REACTIONS (6)
  - Hernia [Unknown]
  - Eye infection [Unknown]
  - Intervertebral disc operation [Unknown]
  - Thermal ablation [Unknown]
  - Dry eye [Unknown]
  - Tremor [Unknown]
